FAERS Safety Report 4931806-8 (Version None)
Quarter: 2006Q1

REPORT INFORMATION
  Report Type: 
  Country: None (occurrence: None)
  Receive Date: 20060303
  Receipt Date: 20060224
  Transmission Date: 20060701
  Serious: Yes (Hospitalization)
  Sender: FDA-Public Use
  Company Number: US-ABBOTT-06P-163-0325991-00

PATIENT
  Sex: Male
  Weight: 39.498 kg

DRUGS (3)
  1. DEPAKOTE [Suspect]
     Indication: BIPOLAR DISORDER
     Dosage: UNKNOWN
     Route: 048
     Dates: start: 20050801, end: 20051201
  2. ZIPRASIDONE HYDROCHLORIDE [Concomitant]
     Indication: BIPOLAR DISORDER
     Route: 048
     Dates: start: 20051201
  3. PROPRANOLOL [Concomitant]
     Indication: ANXIETY
     Route: 048
     Dates: start: 20051201

REACTIONS (1)
  - THROMBOSIS [None]
